FAERS Safety Report 14781241 (Version 2)
Quarter: 2018Q2

REPORT INFORMATION
  Report Type: Not Available
  Country: US (occurrence: US)
  Receive Date: 20180419
  Receipt Date: 20180531
  Transmission Date: 20180711
  Serious: No
  Sender: FDA-Public Use
  Company Number: US-NEUROCRINE BIOSCIENCES INC.-2018NBI01136

PATIENT
  Age: 55 Year
  Sex: Male

DRUGS (10)
  1. CLONAZEPAM. [Concomitant]
     Active Substance: CLONAZEPAM
     Indication: ANXIETY
     Dosage: 1 TABLET TWICE A DAY MUST LAST 30 DAYS
     Route: 048
     Dates: start: 20171101, end: 20180103
  2. CLONAZEPAM. [Concomitant]
     Active Substance: CLONAZEPAM
     Indication: SLEEP DISORDER
     Dosage: 1 TABLET BY MOUTH EVERY EVENING MUST LAST 30 DAYS
     Route: 048
     Dates: start: 20180103, end: 20180221
  3. FLUOXETINE [Concomitant]
     Active Substance: FLUOXETINE HYDROCHLORIDE
     Indication: DEPRESSION
     Dosage: TAKE 3 CAPSULE BY MOUTH EVERY MORNING
     Route: 048
     Dates: start: 20171101, end: 20180103
  4. CLONAZEPAM. [Concomitant]
     Active Substance: CLONAZEPAM
     Indication: ADVERSE DRUG REACTION
     Dosage: 1 TABLET BY MOUTH EVERY EVENING MUST LAST 30 DAYS
     Route: 048
     Dates: start: 20180509
  5. GEODON [Concomitant]
     Active Substance: ZIPRASIDONE HYDROCHLORIDE\ZIPRASIDONE MESYLATE
     Indication: SCHIZOAFFECTIVE DISORDER
     Dosage: 1 CAPSULE
     Route: 048
     Dates: start: 20171101, end: 20180103
  6. GEODON [Concomitant]
     Active Substance: ZIPRASIDONE HYDROCHLORIDE\ZIPRASIDONE MESYLATE
     Dosage: 1 CAPSULE EVERY EVENING
     Route: 048
     Dates: start: 20180509
  7. FLUOXETINE [Concomitant]
     Active Substance: FLUOXETINE HYDROCHLORIDE
     Indication: ANXIETY
     Dosage: 1 CAPSULE BY MOUTH EVERY EVENING
     Route: 048
     Dates: start: 20180103, end: 20180509
  8. FLUOXETINE [Concomitant]
     Active Substance: FLUOXETINE HYDROCHLORIDE
     Dosage: 1 CAPSULE BY MOUTH EVERY EVENING
     Route: 048
     Dates: start: 20180509
  9. GEODON [Concomitant]
     Active Substance: ZIPRASIDONE HYDROCHLORIDE\ZIPRASIDONE MESYLATE
     Dosage: 1 CAPSULE EVERY EVENING
     Route: 048
     Dates: start: 20180103, end: 20180509
  10. INGREZZA [Suspect]
     Active Substance: VALBENAZINE
     Indication: DYSKINESIA
     Route: 048
     Dates: start: 20180221, end: 20180222

REACTIONS (2)
  - Dizziness [Recovered/Resolved]
  - Abdominal pain upper [Recovered/Resolved]

NARRATIVE: CASE EVENT DATE: 20180221
